FAERS Safety Report 5154160-8 (Version None)
Quarter: 2006Q4

REPORT INFORMATION
  Report Type: 
  Country: None (occurrence: None)
  Receive Date: 20061116
  Receipt Date: 20061116
  Transmission Date: 20070319
  Serious: Yes (Hospitalization, Other)
  Sender: FDA-Public Use
  Company Number: None

PATIENT
  Age: 76 Year
  Sex: Female

DRUGS (9)
  1. LOVENOX [Suspect]
     Indication: KNEE ARTHROPLASTY
     Dosage: 70MG/0.7ML  BID SQ
     Route: 058
     Dates: start: 20050513, end: 20050517
  2. LOVENOX [Suspect]
     Indication: THROMBOSIS PROPHYLAXIS
     Dosage: 70MG/0.7ML  BID SQ
     Route: 058
     Dates: start: 20050513, end: 20050517
  3. LANTUS [Concomitant]
  4. TYLENOL [Concomitant]
  5. ALBUTEROL NEB [Concomitant]
  6. PROTONIX [Concomitant]
  7. VIT B12 [Concomitant]
  8. LASIX [Concomitant]
  9. VANCOM [Concomitant]

REACTIONS (1)
  - HEPARIN-INDUCED THROMBOCYTOPENIA [None]
